FAERS Safety Report 4483997-3 (Version None)
Quarter: 2004Q4

REPORT INFORMATION
  Report Type: 
  Country: None (occurrence: None)
  Receive Date: 20041025
  Receipt Date: 20040929
  Transmission Date: 20050328
  Serious: Yes (Hospitalization, Other)
  Sender: FDA-Public Use
  Company Number: US-MERCK-0409USA02689

PATIENT
  Age: 71 Year
  Sex: Female

DRUGS (17)
  1. FOSAMAX [Suspect]
     Indication: OSTEOPOROSIS
     Route: 048
     Dates: start: 20010601, end: 20040609
  2. FOSAMAX [Suspect]
     Route: 048
     Dates: end: 20010601
  3. FOSAMAX [Suspect]
     Route: 048
     Dates: start: 19980101
  4. FOSAMAX [Suspect]
     Route: 048
     Dates: start: 20040101
  5. SYNTHROID [Concomitant]
     Route: 065
  6. ATENOLOL [Concomitant]
     Route: 065
  7. NORVASC [Concomitant]
     Route: 065
  8. PREVACID [Concomitant]
     Route: 065
  9. BEXTRA [Concomitant]
     Route: 065
  10. LIPITOR [Concomitant]
     Route: 065
     Dates: end: 20040609
  11. LIPITOR [Concomitant]
     Route: 065
     Dates: start: 20040101
  12. ZESTRIL [Concomitant]
     Route: 065
  13. LASIX [Concomitant]
     Route: 065
  14. POTASSIUM (UNSPECIFIED) [Concomitant]
     Route: 065
  15. NITROPATCH [Concomitant]
     Route: 065
  16. HYDRODIURIL [Concomitant]
     Route: 065
  17. PREMARIN [Concomitant]
     Route: 065

REACTIONS (3)
  - MUSCLE CRAMP [None]
  - PULMONARY EMBOLISM [None]
  - SLEEP APNOEA SYNDROME [None]
